FAERS Safety Report 12083400 (Version 1)
Quarter: 2016Q1

REPORT INFORMATION
  Report Type: Spontaneous
  Country: US (occurrence: None)
  Receive Date: 20160216
  Receipt Date: 20160216
  Transmission Date: 20160526
  Serious: No
  Sender: FDA-Public Use
  Company Number: None

PATIENT
  Age: 74 Year
  Sex: Female

DRUGS (1)
  1. ALENDRONATE 70MG SUN PHARMACEUTICALS [Suspect]
     Active Substance: ALENDRONATE SODIUM
     Route: 048
     Dates: start: 20151206, end: 20160213

REACTIONS (2)
  - Foreign body [None]
  - Product size issue [None]

NARRATIVE: CASE EVENT DATE: 20160131
